FAERS Safety Report 9983351 (Version 1)
Quarter: 2014Q1

REPORT INFORMATION
  Report Type: Spontaneous
  Country: FR (occurrence: FR)
  Receive Date: 20140307
  Receipt Date: 20140307
  Transmission Date: 20141002
  Serious: Yes (Death, Life-Threatening)
  Sender: FDA-Public Use
  Company Number: FR-SA-2014SA025581

PATIENT
  Age: 58 Year
  Sex: Male

DRUGS (17)
  1. HYDROCHLOROTHIAZIDE/IRBESARTAN [Suspect]
     Indication: HYPERTENSION
     Route: 065
     Dates: end: 20130919
  2. HYDROCHLOROTHIAZIDE/IRBESARTAN [Suspect]
     Indication: HYPERTENSION
     Route: 065
     Dates: start: 20130925
  3. LEVACT [Suspect]
     Indication: B-CELL LYMPHOMA
     Route: 042
     Dates: start: 20130802, end: 20131009
  4. MABTHERA [Suspect]
     Indication: B-CELL LYMPHOMA
     Route: 065
     Dates: start: 20130823, end: 20130925
  5. TRIFLUCAN [Suspect]
     Indication: ORAL CANDIDIASIS
     Route: 065
     Dates: start: 20131012
  6. ALLOPURINOL [Suspect]
     Indication: PRODUCT USED FOR UNKNOWN INDICATION
     Route: 065
     Dates: end: 20130919
  7. ALLOPURINOL [Suspect]
     Indication: PRODUCT USED FOR UNKNOWN INDICATION
     Route: 065
     Dates: start: 20130925
  8. ACEBUTOLOL [Suspect]
     Indication: HYPERTENSION
     Route: 065
     Dates: end: 20130918
  9. ACEBUTOLOL [Suspect]
     Indication: HYPERTENSION
     Route: 065
     Dates: start: 20130925
  10. ATORVASTATIN [Concomitant]
  11. ESOMEPRAZOLE [Concomitant]
  12. VALACICLOVIR [Concomitant]
  13. KARDEGIC [Concomitant]
  14. INNOHEP [Concomitant]
     Indication: VENOUS THROMBOSIS
     Dates: start: 20130807
  15. ARANESP [Concomitant]
     Dosage: 1 INJECTION WEEKLY IF HEMOGLOBIN LEVEL{12G/DL
  16. GRANOCYTE [Concomitant]
     Dates: start: 20130830, end: 20130903
  17. ORBENINE [Concomitant]
     Dates: start: 20130803, end: 20130915

REACTIONS (2)
  - Acute generalised exanthematous pustulosis [Fatal]
  - Toxic epidermal necrolysis [Fatal]
